FAERS Safety Report 6050957-0 (Version None)
Quarter: 2009Q1

REPORT INFORMATION
  Report Type: 
  Country: None (occurrence: None)
  Receive Date: 20090126
  Receipt Date: 20080905
  Transmission Date: 20090719
  Serious: No
  Sender: FDA-Public Use
  Company Number: US-TYCO HEALTHCARE/MALLINCKRODT-T200801485

PATIENT

DRUGS (1)
  1. OPTIRAY 300 [Suspect]
     Indication: COMPUTERISED TOMOGRAM
     Dosage: UNK, SINGLE
     Route: 042
     Dates: start: 20080813, end: 20080813

REACTIONS (6)
  - DYSPNOEA [None]
  - ORAL PRURITUS [None]
  - PARAESTHESIA MUCOSAL [None]
  - PARAESTHESIA ORAL [None]
  - PRURITUS [None]
  - THROAT IRRITATION [None]
